FAERS Safety Report 16554917 (Version 1)
Quarter: 2019Q3

REPORT INFORMATION
  Report Type: Spontaneous
  Country: GB (occurrence: GB)
  Receive Date: 20190710
  Receipt Date: 20190710
  Transmission Date: 20191004
  Serious: Yes (Other)
  Sender: FDA-Public Use
  Company Number: GB-BAUSCH-BL-2019-019282

PATIENT
  Age: 30 Year
  Sex: Female
  Weight: 127.45 kg

DRUGS (4)
  1. CERAZETTE [Concomitant]
     Indication: PRODUCT USED FOR UNKNOWN INDICATION
  2. FLUOXETINE [Concomitant]
     Active Substance: FLUOXETINE HYDROCHLORIDE
     Indication: PRODUCT USED FOR UNKNOWN INDICATION
  3. PREDNISOLONE. [Suspect]
     Active Substance: PREDNISOLONE
     Indication: HIDRADENITIS
     Route: 048
     Dates: start: 20190603, end: 20190606
  4. VITAMIN B12 [Concomitant]
     Active Substance: CYANOCOBALAMIN
     Indication: PRODUCT USED FOR UNKNOWN INDICATION

REACTIONS (19)
  - Dizziness postural [Recovering/Resolving]
  - Fatigue [Unknown]
  - Hypersensitivity [Recovered/Resolved]
  - Musculoskeletal pain [Unknown]
  - Confusional state [Recovered/Resolved with Sequelae]
  - Flat affect [Unknown]
  - Muscle spasms [Recovered/Resolved with Sequelae]
  - Feeling hot [Not Recovered/Not Resolved]
  - Furuncle [Recovered/Resolved with Sequelae]
  - Muscular weakness [Recovered/Resolved]
  - Slow response to stimuli [Unknown]
  - Neck pain [Recovered/Resolved]
  - Lethargy [Not Recovered/Not Resolved]
  - Headache [Not Recovered/Not Resolved]
  - Hyperhidrosis [Not Recovered/Not Resolved]
  - Diplopia [Recovered/Resolved]
  - Vertigo [Unknown]
  - Memory impairment [Recovering/Resolving]
  - Hyperhidrosis [Unknown]

NARRATIVE: CASE EVENT DATE: 20190603
